FAERS Safety Report 26106842 (Version 1)
Quarter: 2025Q4

REPORT INFORMATION
  Report Type: Spontaneous
  Country: EU (occurrence: EU)
  Receive Date: 20251201
  Receipt Date: 20251201
  Transmission Date: 20260118
  Serious: Yes (Other)
  Sender: CHEPLAPHARM
  Company Number: None

PATIENT
  Age: 30 Year
  Sex: Female

DRUGS (2)
  1. CLONAZEPAM [Suspect]
     Active Substance: CLONAZEPAM
     Indication: Suicidal ideation
     Dosage: 60 MG - 80 MG, AT AROUND 4:00 PM, THE LADY ALLEGEDLY TOOK BETWEEN 30 AND 40 TABLETS OF RIVOTRIL 2...
     Route: 048
     Dates: start: 20250921, end: 20250921
  2. NORMABEL [Suspect]
     Active Substance: DIAZEPAM
     Indication: Suicidal ideation
     Dosage: 35 MG - 40 MG, AT AROUND 4:00 PM, THE LADY ALLEGEDLY TOOK BETWEEN 30 AND 40 TABLETS OF RIVOTRIL 2...
     Route: 048
     Dates: start: 20250921, end: 20250921

REACTIONS (4)
  - Asthenia [Unknown]
  - Aggression [Unknown]
  - Intentional overdose [Unknown]
  - Suicide attempt [Unknown]

NARRATIVE: CASE EVENT DATE: 20250921
